FAERS Safety Report 7483962-8 (Version None)
Quarter: 2011Q2

REPORT INFORMATION
  Report Type: 
  Country: None (occurrence: None)
  Receive Date: 20110517
  Receipt Date: 20110512
  Transmission Date: 20111010
  Serious: Yes (Other)
  Sender: FDA-Public Use
  Company Number: MX-SANOFI-AVENTIS-2011SA029696

PATIENT
  Age: 66 Year
  Sex: Female
  Weight: 40 kg

DRUGS (2)
  1. HYDROCHLOROTHIAZIDE [Concomitant]
     Route: 048
  2. LEFLUNOMIDE [Suspect]
     Indication: RHEUMATOID ARTHRITIS
     Route: 048
     Dates: start: 20101101, end: 20110415

REACTIONS (5)
  - DRY SKIN [None]
  - SYSTEMIC SCLEROSIS [None]
  - SJOGREN'S SYNDROME [None]
  - WEIGHT DECREASED [None]
  - ALOPECIA [None]
